FAERS Safety Report 7961711-4 (Version None)
Quarter: 2011Q4

REPORT INFORMATION
  Report Type: 
  Country: None (occurrence: None)
  Receive Date: 20111207
  Receipt Date: 20111202
  Transmission Date: 20120403
  Serious: Yes (Other)
  Sender: FDA-Public Use
  Company Number: CH-PFIZER INC-2011273874

PATIENT
  Age: 30 Year
  Sex: Female

DRUGS (1)
  1. RELPAX [Suspect]
     Indication: HEADACHE
     Dosage: 40 MG, SPORADICALLY
     Route: 048
     Dates: end: 20111122

REACTIONS (2)
  - FEAR OF DISEASE [None]
  - ARRHYTHMIA [None]
